FAERS Safety Report 4472241-9 (Version None)
Quarter: 2004Q4

REPORT INFORMATION
  Report Type: 
  Country: None (occurrence: None)
  Receive Date: 20041007
  Receipt Date: 20040921
  Transmission Date: 20050328
  Serious: Yes (Other)
  Sender: FDA-Public Use
  Company Number: DSA_25029_2004

PATIENT
  Sex: Female

DRUGS (1)
  1. TEMESTA [Suspect]
     Indication: SLEEP DISORDER

REACTIONS (3)
  - COUGH [None]
  - THERAPY NON-RESPONDER [None]
  - VOCAL CORD POLYP [None]
